FAERS Safety Report 25921655 (Version 2)
Quarter: 2025Q4

REPORT INFORMATION
  Report Type: Spontaneous
  Country: JP (occurrence: JP)
  Receive Date: 20251014
  Receipt Date: 20251219
  Transmission Date: 20260118
  Serious: Yes (Other)
  Sender: NOVARTIS
  Company Number: JP-002147023-NVSJ2025JP008953

PATIENT
  Age: 91 Year
  Sex: Female

DRUGS (3)
  1. BEOVU [Suspect]
     Active Substance: BROLUCIZUMAB-DBLL
     Indication: Age-related macular degeneration
     Dosage: 6 MG, 4W
     Route: 031
     Dates: start: 20250612
  2. BEOVU [Suspect]
     Active Substance: BROLUCIZUMAB-DBLL
     Dosage: 6 MG, 4W
     Route: 031
     Dates: start: 20250710
  3. BEOVU [Suspect]
     Active Substance: BROLUCIZUMAB-DBLL
     Dosage: 6 MG, 4W
     Route: 031
     Dates: start: 20250814, end: 20250814

REACTIONS (8)
  - Keratic precipitates [Recovered/Resolved]
  - Retinal vascular occlusion [Recovered/Resolved with Sequelae]
  - Retinal vasculitis [Recovered/Resolved with Sequelae]
  - Retinal perivascular sheathing [Recovered/Resolved with Sequelae]
  - Vitreous opacities [Recovered/Resolved]
  - Eye inflammation [Recovered/Resolved]
  - Visual acuity reduced [Recovered/Resolved]
  - Vision blurred [Unknown]

NARRATIVE: CASE EVENT DATE: 20250822
